FAERS Safety Report 10186301 (Version 2)
Quarter: 2014Q2

REPORT INFORMATION
  Report Type: Spontaneous
  Country: JP (occurrence: JP)
  Receive Date: 20140521
  Receipt Date: 20140527
  Transmission Date: 20141212
  Serious: Yes (Other)
  Sender: FDA-Public Use
  Company Number: JP-ALLERGAN-1410075US

PATIENT
  Age: 65 Year
  Sex: Female

DRUGS (6)
  1. BOTOX [Suspect]
     Indication: MUSCLE SPASMS
     Dosage: 160 UNITS, SINGLE
     Route: 030
     Dates: start: 20130520, end: 20130520
  2. BOTOX [Suspect]
     Dosage: 160 UNITS, SINGLE
     Dates: start: 20131018, end: 20131018
  3. BOTOX [Suspect]
     Dosage: UNK UNK, SINGLE
     Dates: start: 20140416, end: 20140416
  4. OPALMON [Concomitant]
     Route: 048
  5. MYONAL [Concomitant]
     Route: 048
  6. FOSAMAC 35MG [Concomitant]
     Route: 048

REACTIONS (4)
  - Haemorrhage subcutaneous [Recovered/Resolved]
  - Skin discolouration [Recovering/Resolving]
  - Injection site discolouration [Recovering/Resolving]
  - Incorrect route of drug administration [Unknown]
